FAERS Safety Report 17891859 (Version 2)
Quarter: 2020Q2

REPORT INFORMATION
  Report Type: Spontaneous
  Country: GB (occurrence: GB)
  Receive Date: 20200612
  Receipt Date: 20200619
  Transmission Date: 20200714
  Serious: Yes (Life-Threatening, Other)
  Sender: FDA-Public Use
  Company Number: GB-GLAXOSMITHKLINE-GB2020095721

PATIENT
  Age: 18 Year
  Sex: Female
  Weight: 57 kg

DRUGS (6)
  1. SUMATRIPTAN. [Suspect]
     Active Substance: SUMATRIPTAN
     Indication: MIGRAINE
     Dosage: ONE AS SOON AS POSSIBLE AFTER ONSET.. DOSE CAN BE REPEATED AFTER 2 HOURS.
     Route: 048
     Dates: start: 20200512
  2. LUCETTE [Concomitant]
     Active Substance: DROSPIRENONE\ETHINYL ESTRADIOL
     Indication: PRODUCT USED FOR UNKNOWN INDICATION
     Dosage: UNK FOR 21 DAYS FOLLOWED BY 7 TABLET FREE DAYS, 0.03MG/3MG
     Route: 065
  3. CETRABEN EMOLLIENT CREAM [Concomitant]
     Indication: PRODUCT USED FOR UNKNOWN INDICATION
     Dosage: UNK
     Route: 065
  4. IBUPROFEN. [Concomitant]
     Active Substance: IBUPROFEN
     Indication: PRODUCT USED FOR UNKNOWN INDICATION
     Dosage: UNK
     Route: 065
  5. ZINERYT [Concomitant]
     Indication: ACNE
     Dosage: TO BE APPLIED ONCE OR TWICE A DAY
     Route: 065
     Dates: start: 20200318
  6. ADAPALENE. [Concomitant]
     Active Substance: ADAPALENE
     Indication: ACNE
     Dosage: UNK
     Route: 065

REACTIONS (1)
  - Pharyngeal swelling [Recovered/Resolved]

NARRATIVE: CASE EVENT DATE: 20200514
